FAERS Safety Report 20838425 (Version 2)
Quarter: 2022Q3

REPORT INFORMATION
  Report Type: Other
  Country: AR (occurrence: AR)
  Receive Date: 20220517
  Receipt Date: 20220815
  Transmission Date: 20221027
  Serious: Yes (Hospitalization, Other)
  Sender: FDA-Public Use
  Company Number: AR-002147023-NVSC2021AR285104

PATIENT
  Age: 71 Year
  Sex: Female

DRUGS (2)
  1. XOLAIR [Suspect]
     Active Substance: OMALIZUMAB
     Indication: Asthma
     Dosage: 300 MG, QMO
     Route: 058
     Dates: start: 20120318
  2. XOLAIR [Suspect]
     Active Substance: OMALIZUMAB
     Dosage: 600 MG, QMO
     Route: 058
     Dates: start: 20120318

REACTIONS (22)
  - Cerebrovascular accident [Unknown]
  - Pleurisy [Unknown]
  - Pain [Unknown]
  - Pulmonary haemorrhage [Unknown]
  - Hypoxia [Unknown]
  - Hand fracture [Unknown]
  - Accident [Unknown]
  - Ligament injury [Unknown]
  - Back pain [Unknown]
  - Pain in extremity [Unknown]
  - Hypoaesthesia [Unknown]
  - Pyrexia [Unknown]
  - Productive cough [Unknown]
  - Bone pain [Unknown]
  - Back injury [Unknown]
  - Speech disorder [Unknown]
  - Faeces discoloured [Unknown]
  - Diverticulum [Unknown]
  - Fear [Unknown]
  - Drug hypersensitivity [Unknown]
  - Fall [Unknown]
  - Incorrect dose administered [Unknown]
